FAERS Safety Report 20482502 (Version 1)
Quarter: 2022Q1

REPORT INFORMATION
  Report Type: Report from Study
  Country: CA (occurrence: CA)
  Receive Date: 20220217
  Receipt Date: 20220217
  Transmission Date: 20220423
  Serious: Yes (Hospitalization)
  Sender: FDA-Public Use
  Company Number: CA-ABBVIE-22K-028-4279723-00

PATIENT
  Sex: Female

DRUGS (1)
  1. HUMIRA [Suspect]
     Active Substance: ADALIMUMAB
     Indication: Colitis ulcerative
     Route: 058
     Dates: start: 20181020

REACTIONS (12)
  - Nephropathy [Unknown]
  - Constipation [Unknown]
  - Nephrotic syndrome [Unknown]
  - General physical health deterioration [Unknown]
  - Renal disorder [Not Recovered/Not Resolved]
  - Malnutrition [Unknown]
  - Hypophagia [Unknown]
  - Blood creatinine increased [Unknown]
  - Abdominal distension [Unknown]
  - Flatulence [Unknown]
  - Renal impairment [Unknown]
  - Dyspnoea [Unknown]

NARRATIVE: CASE EVENT DATE: 20200101
